FAERS Safety Report 17554928 (Version 9)
Quarter: 2023Q4

REPORT INFORMATION
  Report Type: Spontaneous
  Country: US (occurrence: US)
  Receive Date: 20200318
  Receipt Date: 20231211
  Transmission Date: 20240110
  Serious: No
  Sender: FDA-Public Use
  Company Number: US-PFIZER INC-2020115238

PATIENT
  Age: 13 Year
  Sex: Female
  Weight: 45.36 kg

DRUGS (5)
  1. XELJANZ [Suspect]
     Active Substance: TOFACITINIB CITRATE
     Indication: Chronic recurrent multifocal osteomyelitis
     Dosage: 5 MG, TWICE A DAY
     Route: 048
  2. XELJANZ [Suspect]
     Active Substance: TOFACITINIB CITRATE
     Indication: Psoriatic arthropathy
  3. XELJANZ [Suspect]
     Active Substance: TOFACITINIB CITRATE
     Indication: Rheumatoid arthritis
  4. UNSPECIFIED INGREDIENT [Concomitant]
     Active Substance: UNSPECIFIED INGREDIENT
     Indication: Osteitis
     Dosage: UNK, EVERY 3 MONTHS
     Route: 042
  5. UNSPECIFIED INGREDIENT [Concomitant]
     Active Substance: UNSPECIFIED INGREDIENT
     Indication: Bone disorder

REACTIONS (4)
  - Red blood cell sedimentation rate increased [Unknown]
  - Inflammatory marker increased [Unknown]
  - Off label use [Unknown]
  - Product use issue [Unknown]
